FAERS Safety Report 21161098 (Version 1)
Quarter: 2022Q3

REPORT INFORMATION
  Report Type: Spontaneous
  Country: CN (occurrence: CN)
  Receive Date: 20220802
  Receipt Date: 20220802
  Transmission Date: 20221026
  Serious: Yes (Other)
  Sender: FDA-Public Use
  Company Number: CN-BRISTOL-MYERS SQUIBB COMPANY-2022-082567

PATIENT
  Age: 67 Year
  Sex: Female
  Weight: 58 kg

DRUGS (2)
  1. PACLITAXEL [Suspect]
     Active Substance: PACLITAXEL
     Indication: Endometrial cancer
     Dosage: BETWEEN JULY 5 AND NOVEMBER 29, 2019
     Route: 041
     Dates: start: 20190705
  2. TORIPALIMAB [Concomitant]
     Active Substance: TORIPALIMAB
     Indication: Endometrial cancer
     Route: 041

REACTIONS (2)
  - Neurotoxicity [Unknown]
  - Intentional product use issue [Unknown]
